FAERS Safety Report 8809123 (Version 1)
Quarter: 2012Q4

REPORT INFORMATION
  Report Type: Spontaneous
  Country: US (occurrence: None)
  Receive Date: 20120921
  Receipt Date: 20120921
  Transmission Date: 20130627
  Serious: Yes (Life-Threatening)
  Sender: FDA-Public Use
  Company Number: None

PATIENT
  Age: 47 Year
  Sex: Female
  Weight: 54.43 kg

DRUGS (1)
  1. LYRICA [Suspect]
     Indication: NERVE PAIN
     Dosage: 75mg once daily
     Dates: start: 20120915, end: 20120919

REACTIONS (3)
  - Chest discomfort [None]
  - Dyspnoea [None]
  - Joint swelling [None]
